FAERS Safety Report 5326892-X (Version None)
Quarter: 2007Q2

REPORT INFORMATION
  Report Type: 
  Country: None (occurrence: None)
  Receive Date: 20070511
  Receipt Date: 20070430
  Transmission Date: 20071010
  Serious: Yes (Life-Threatening, Hospitalization)
  Sender: FDA-Public Use
  Company Number: 2007-00999

PATIENT
  Age: 58 Year
  Sex: Male
  Weight: 63 kg

DRUGS (7)
  1. VELCADE [Suspect]
     Indication: PERIPHERAL T-CELL LYMPHOMA UNSPECIFIED
     Dosage: 2.50 MG
     Dates: start: 20070314, end: 20070318
  2. CYCLOPHOSPHAMIDE [Suspect]
     Dosage: 2040.00 MG, INTRAVENOUS
  3. DOXORUBICIN (DOXORUBICIN) INJECTON [Suspect]
     Indication: PERIPHERAL T-CELL LYMPHOMA UNSPECIFIED
     Dosage: 127.00 MG, INTRAVENOUS
     Route: 042
     Dates: start: 20070314, end: 20070314
  4. ELDISINE [Suspect]
     Indication: PERIPHERAL T-CELL LYMPHOMA UNSPECIFIED
     Dosage: 3.40MG, INTRAVENOUS
     Route: 042
     Dates: start: 20070314, end: 20070318
  5. BLEOMYCIN [Suspect]
     Indication: PERIPHERAL T-CELL LYMPHOMA UNSPECIFIED
     Dosage: 10.00 MG, INTRAVENOUS
     Route: 042
     Dates: start: 20070314, end: 20070318
  6. METHOTREXATE [Suspect]
     Indication: PERIPHERAL T-CELL LYMPHOMA UNSPECIFIED
     Dosage: 15.00 MG, INTRAVENOUS
     Route: 042
     Dates: start: 20070314, end: 20070318
  7. ISOPTIN [Concomitant]

REACTIONS (10)
  - BLOOD CULTURE POSITIVE [None]
  - CONFUSIONAL STATE [None]
  - DIARRHOEA [None]
  - ESCHERICHIA INFECTION [None]
  - FEBRILE BONE MARROW APLASIA [None]
  - PROTEUS INFECTION [None]
  - RECTAL HAEMORRHAGE [None]
  - SEPTIC SHOCK [None]
  - THROMBOCYTOPENIA [None]
  - VENTRICULAR HYPOKINESIA [None]
